FAERS Safety Report 15138114 (Version 1)
Quarter: 2018Q3

REPORT INFORMATION
  Report Type: Spontaneous
  Country: CA (occurrence: CA)
  Receive Date: 20180713
  Receipt Date: 20180713
  Transmission Date: 20181010
  Serious: Yes (Other)
  Sender: FDA-Public Use
  Company Number: CA-CONCORDIA PHARMACEUTICALS INC.-GSH201807-002463

PATIENT
  Age: 48 Year
  Sex: Male

DRUGS (3)
  1. SIMPONI [Concomitant]
     Active Substance: GOLIMUMAB
  2. METHOTREXATE. [Concomitant]
     Active Substance: METHOTREXATE
     Dates: start: 20101006
  3. HYDROXYCHLOROQUINE [Suspect]
     Active Substance: HYDROXYCHLOROQUINE
     Route: 065
     Dates: start: 20100910

REACTIONS (2)
  - Drug ineffective [Unknown]
  - Synovitis [Unknown]
